FAERS Safety Report 19389904 (Version 4)
Quarter: 2021Q3

REPORT INFORMATION
  Report Type: Spontaneous
  Country: DE (occurrence: DE)
  Receive Date: 20210608
  Receipt Date: 20210802
  Transmission Date: 20211014
  Serious: Yes (Other)
  Sender: FDA-Public Use
  Company Number: DE-BRACCO-2021DE02157

PATIENT
  Age: 8 Year
  Sex: Male

DRUGS (2)
  1. IBUPROFEN. [Concomitant]
     Active Substance: IBUPROFEN
     Indication: HEADACHE
     Dosage: AS NECESSARY, 400MG 10?12X/MONTH
  2. PROHANCE [Suspect]
     Active Substance: GADOTERIDOL
     Indication: MAGNETIC RESONANCE IMAGING
     Dosage: 1X 6 ML, SINGLE
     Route: 042
     Dates: start: 20160426, end: 20160426

REACTIONS (12)
  - Depressed level of consciousness [Recovering/Resolving]
  - Allergy to animal [Unknown]
  - Myalgia [Recovered/Resolved]
  - Headache [Not Recovered/Not Resolved]
  - Night sweats [Not Recovered/Not Resolved]
  - Glucose tolerance impaired [Not Recovered/Not Resolved]
  - Hepatic steatosis [Not Recovered/Not Resolved]
  - Insulin resistance [Not Recovered/Not Resolved]
  - Obesity [Unknown]
  - Seasonal allergy [Unknown]
  - Contrast media deposition [Unknown]
  - Hypertriglyceridaemia [Unknown]

NARRATIVE: CASE EVENT DATE: 20160428
